FAERS Safety Report 14969743 (Version 1)
Quarter: 2018Q2

REPORT INFORMATION
  Report Type: Spontaneous
  Country: US (occurrence: US)
  Receive Date: 20180512
  Receipt Date: 20180512
  Transmission Date: 20180711
  Serious: Yes (Other)
  Sender: FDA-Public Use
  Company Number: None

PATIENT
  Age: 70 Year
  Sex: Female
  Weight: 60.75 kg

DRUGS (10)
  1. MECLIZINE [Concomitant]
     Active Substance: MECLIZINE HYDROCHLORIDE
  2. FLAXSEED [Concomitant]
     Active Substance: FLAX SEED
  3. PROBIOTIC [Concomitant]
     Active Substance: PROBIOTICS NOS
  4. VITAMIN B12 [Concomitant]
     Active Substance: CYANOCOBALAMIN
  5. MAGNESIUM [Concomitant]
     Active Substance: MAGNESIUM
  6. IBGARD [Concomitant]
  7. VITAMIN D3 [Concomitant]
     Active Substance: CHOLECALCIFEROL
  8. CARAFATE [Suspect]
     Active Substance: SUCRALFATE
     Indication: DYSPEPSIA
     Dosage: ?          QUANTITY:2 TEASPOON(S);?
     Route: 048
     Dates: start: 20180430, end: 20180510
  9. CLONAZEPAM. [Concomitant]
     Active Substance: CLONAZEPAM
  10. CALCIUM [Concomitant]
     Active Substance: CALCIUM

REACTIONS (3)
  - Agitation [None]
  - Pain [None]
  - Anxiety [None]

NARRATIVE: CASE EVENT DATE: 20180510
